FAERS Safety Report 21184966 (Version 1)
Quarter: 2022Q3

REPORT INFORMATION
  Report Type: Spontaneous
  Country: NL (occurrence: NL)
  Receive Date: 20220808
  Receipt Date: 20220808
  Transmission Date: 20221027
  Serious: Yes (Other)
  Sender: FDA-Public Use
  Company Number: NL-Accord-271651

PATIENT
  Sex: Male

DRUGS (4)
  1. METHOTREXATE [Suspect]
     Active Substance: METHOTREXATE
     Indication: Rheumatoid arthritis
     Dosage: STRENGTH: 15MG-0.3ML, WEEKLY?0,3ML
     Route: 058
     Dates: start: 202111
  2. FOLIC ACID [Concomitant]
     Active Substance: FOLIC ACID
  3. MOMETASONE [Concomitant]
     Active Substance: MOMETASONE
  4. DESLORATADINE [Concomitant]
     Active Substance: DESLORATADINE

REACTIONS (2)
  - Injection site pain [Recovered/Resolved]
  - Syringe issue [Unknown]

NARRATIVE: CASE EVENT DATE: 20220718
